FAERS Safety Report 8459540-0 (Version None)
Quarter: 2012Q2

REPORT INFORMATION
  Report Type: 
  Country: None (occurrence: None)
  Receive Date: 20120622
  Receipt Date: 20120523
  Transmission Date: 20120825
  Serious: No
  Sender: FDA-Public Use
  Company Number: BR-PFIZER INC-2012124763

PATIENT
  Age: 58 Year
  Sex: Female
  Weight: 78 kg

DRUGS (3)
  1. PANTOPRAZOLE [Suspect]
     Indication: HIATUS HERNIA
     Dosage: 1 DOSAGE FORM 40 MG, DAILY
     Route: 048
     Dates: start: 20111219, end: 20120312
  2. AZULFIDINE [Concomitant]
     Indication: COLITIS ULCERATIVE
     Dosage: 2 DOSAGE FORMS (1 IN 12 HR)
     Route: 048
     Dates: start: 20040101
  3. NEUROVIT [Concomitant]
     Indication: VITAMIN B1 DEFICIENCY
     Dosage: 3 DF, 5000IU, DAILY
     Route: 051

REACTIONS (3)
  - VISION BLURRED [None]
  - RETINAL DETACHMENT [None]
  - VITREOUS DISORDER [None]
